FAERS Safety Report 16028322 (Version 3)
Quarter: 2019Q1

REPORT INFORMATION
  Report Type: Report from Study
  Country: None (occurrence: ES)
  Receive Date: 20190304
  Receipt Date: 20190326
  Transmission Date: 20190418
  Serious: Yes (Hospitalization, Other)
  Sender: FDA-Public Use
  Company Number: ES-ABBVIE-19S-144-2683287-00

PATIENT
  Age: 79 Year
  Sex: Male

DRUGS (2)
  1. DUODOPA [Suspect]
     Active Substance: CARBIDOPA\LEVODOPA
     Indication: PARKINSON^S DISEASE
     Route: 050
  2. SINTROM [Suspect]
     Active Substance: ACENOCOUMAROL
     Indication: CARDIAC FAILURE
     Route: 048
     Dates: start: 20181220, end: 20190107

REACTIONS (13)
  - Cardiac failure [Not Recovered/Not Resolved]
  - Cerebrovascular accident [Recovering/Resolving]
  - Disorientation [Recovered/Resolved]
  - Abnormal behaviour [Recovered/Resolved]
  - Loss of personal independence in daily activities [Unknown]
  - Dyskinesia [Recovered/Resolved]
  - Cognitive disorder [Not Recovered/Not Resolved]
  - IIIrd nerve paralysis [Recovered/Resolved with Sequelae]
  - Pituitary tumour benign [Recovering/Resolving]
  - Dysphagia [Not Recovered/Not Resolved]
  - Tachycardia [Unknown]
  - Aggression [Recovered/Resolved]
  - Obsessive-compulsive disorder [Recovering/Resolving]

NARRATIVE: CASE EVENT DATE: 20181216
